FAERS Safety Report 19313132 (Version 1)
Quarter: 2021Q2

REPORT INFORMATION
  Report Type: Spontaneous
  Country: US (occurrence: US)
  Receive Date: 20210526
  Receipt Date: 20210526
  Transmission Date: 20210717
  Serious: No
  Sender: FDA-Public Use
  Company Number: None

PATIENT
  Age: 41 Year
  Sex: Male

DRUGS (1)
  1. LORAZEPAM (LORAZEPAM 1MG TAB,UD) [Suspect]
     Active Substance: LORAZEPAM
     Route: 042
     Dates: start: 20180501, end: 20180506

REACTIONS (2)
  - Sedation [None]
  - Respiratory depression [None]

NARRATIVE: CASE EVENT DATE: 20180506
